FAERS Safety Report 25934871 (Version 1)
Quarter: 2025Q4

REPORT INFORMATION
  Report Type: Spontaneous
  Country: CA (occurrence: CA)
  Receive Date: 20251017
  Receipt Date: 20251017
  Transmission Date: 20260118
  Serious: Yes (Other)
  Sender: PFIZER
  Company Number: CA-PFIZER INC-202500204649

PATIENT
  Age: 67 Year
  Sex: Female

DRUGS (5)
  1. RUXIENCE [Suspect]
     Active Substance: RITUXIMAB-PVVR
     Indication: Rheumatoid arthritis
     Dosage: 1000 MG,DAY 1 AND DAY 15
     Route: 042
     Dates: start: 20240827, end: 20240910
  2. RUXIENCE [Suspect]
     Active Substance: RITUXIMAB-PVVR
     Dosage: 1000 MG,DAY 1 AND DAY 15
     Route: 042
     Dates: start: 20240910
  3. ACRYLARM [Concomitant]
     Dosage: 1 DF
  4. NEVANAC [Concomitant]
     Active Substance: NEPAFENAC
     Dosage: 1 DF
  5. MAXIDEX [Concomitant]
     Active Substance: DEXAMETHASONE
     Dosage: 1 DF

REACTIONS (1)
  - Eye operation [Unknown]
